FAERS Safety Report 17948922 (Version 1)
Quarter: 2020Q2

REPORT INFORMATION
  Report Type: Spontaneous
  Country: US (occurrence: US)
  Receive Date: 20200625
  Receipt Date: 20200625
  Transmission Date: 20200714
  Serious: No
  Sender: FDA-Public Use
  Company Number: US-ROCHE-2387702

PATIENT
  Age: 43 Year
  Sex: Female
  Weight: 56.75 kg

DRUGS (4)
  1. KLONOPIN [Suspect]
     Active Substance: CLONAZEPAM
     Indication: REFLUX LARYNGITIS
     Route: 048
     Dates: start: 20190201
  2. KLONOPIN [Suspect]
     Active Substance: CLONAZEPAM
     Indication: GASTROINTESTINAL BACTERIAL OVERGROWTH
  3. CLONAZEPAM. [Suspect]
     Active Substance: CLONAZEPAM
     Indication: REFLUX LARYNGITIS
     Dosage: 1.25 MG TOTAL PER DAY (0.5 MG IN MORNING AND 0.75 MG IN EVENING)
     Route: 048
     Dates: start: 201811
  4. CLONAZEPAM. [Suspect]
     Active Substance: CLONAZEPAM
     Indication: GASTROINTESTINAL BACTERIAL OVERGROWTH

REACTIONS (14)
  - Hypoaesthesia [Not Recovered/Not Resolved]
  - Intentional product use issue [Unknown]
  - Off label use [Unknown]
  - Gastrointestinal bacterial overgrowth [Recovering/Resolving]
  - Nervousness [Not Recovered/Not Resolved]
  - Tinnitus [Not Recovered/Not Resolved]
  - Dizziness [Not Recovered/Not Resolved]
  - Abdominal discomfort [Not Recovered/Not Resolved]
  - Product quality issue [Unknown]
  - Sleep disorder [Not Recovered/Not Resolved]
  - Self-medication [Not Recovered/Not Resolved]
  - Nausea [Not Recovered/Not Resolved]
  - Hyperacusis [Unknown]
  - Burning sensation [Not Recovered/Not Resolved]

NARRATIVE: CASE EVENT DATE: 201907
